FAERS Safety Report 4930741-9 (Version None)
Quarter: 2006Q1

REPORT INFORMATION
  Report Type: 
  Country: None (occurrence: None)
  Receive Date: 20060227
  Receipt Date: 20060214
  Transmission Date: 20060701
  Serious: Yes (Hospitalization, Other)
  Sender: FDA-Public Use
  Company Number: 2006022134

PATIENT
  Age: 47 Year
  Sex: Male
  Weight: 84.369 kg

DRUGS (4)
  1. CELEBREX [Suspect]
     Indication: RHEUMATOID ARTHRITIS
     Dosage: 200 MG (200 MG, 1 IN 1 D), ORAL
     Route: 048
  2. WELLBUTRIN SR [Concomitant]
  3. FLECAINIDE ACETATE [Concomitant]
  4. ASPIRIN [Concomitant]

REACTIONS (9)
  - CARDIAC DISORDER [None]
  - CARDIAC FLUTTER [None]
  - DYSPNOEA [None]
  - FATIGUE [None]
  - HEART RATE INCREASED [None]
  - HYPERTENSION [None]
  - MULTIPLE SCLEROSIS [None]
  - PALPITATIONS [None]
  - SCAR [None]
